FAERS Safety Report 10802693 (Version 3)
Quarter: 2015Q1

REPORT INFORMATION
  Report Type: Spontaneous
  Country: US (occurrence: US)
  Receive Date: 20150217
  Receipt Date: 20150325
  Transmission Date: 20150721
  Serious: Yes (Hospitalization, Disabling)
  Sender: FDA-Public Use
  Company Number: US-SA-2015SA018116

PATIENT
  Age: 60 Year
  Sex: Male

DRUGS (6)
  1. HUMALOG [Suspect]
     Active Substance: INSULIN LISPRO
     Dosage: FREQUENCY: HOURLY FOR ABOUT 3 TIMES, THEN EVERY 2 HOURS FOR A TOTAL OF 80 UNITS DOSE:10 UNIT(S)
     Route: 065
     Dates: start: 201501
  2. LANTUS [Suspect]
     Active Substance: INSULIN GLARGINE
     Indication: TYPE 1 DIABETES MELLITUS
     Route: 065
  3. LANTUS [Suspect]
     Active Substance: INSULIN GLARGINE
     Indication: TYPE 1 DIABETES MELLITUS
     Dosage: DOSE:22 UNIT(S)
     Route: 065
  4. HUMALOG [Suspect]
     Active Substance: INSULIN LISPRO
     Route: 065
  5. LANTUS [Suspect]
     Active Substance: INSULIN GLARGINE
     Indication: TYPE 1 DIABETES MELLITUS
     Dosage: DOSE:22 UNIT(S)
     Route: 065
  6. LANTUS [Suspect]
     Active Substance: INSULIN GLARGINE
     Indication: TYPE 1 DIABETES MELLITUS
     Dosage: DOSE:22 UNIT(S)
     Route: 065

REACTIONS (8)
  - Feeling abnormal [Unknown]
  - Blood glucose decreased [Unknown]
  - Drug ineffective [Unknown]
  - Seizure [Recovered/Resolved]
  - Blood glucose increased [Recovered/Resolved]
  - Prescribed overdose [Recovered/Resolved]
  - Tinnitus [Unknown]
  - Disability [Unknown]

NARRATIVE: CASE EVENT DATE: 20150116
